FAERS Safety Report 24034899 (Version 1)
Quarter: 2024Q3

REPORT INFORMATION
  Report Type: Spontaneous
  Country: US (occurrence: US)
  Receive Date: 20240701
  Receipt Date: 20240701
  Transmission Date: 20241017
  Serious: Yes (Life-Threatening)
  Sender: MYLAN
  Company Number: US-MYLANLABS-2024M1060840

PATIENT
  Age: 66 Year
  Sex: Female

DRUGS (1)
  1. EPINEPHRINE [Suspect]
     Active Substance: EPINEPHRINE
     Indication: Asthma
     Dosage: UNK UNK, QD, 20 TIMES (AEROSOL)
     Route: 055

REACTIONS (4)
  - Stress cardiomyopathy [Unknown]
  - Cardiac arrest [Recovered/Resolved]
  - Intentional product misuse [Unknown]
  - Off label use [Unknown]
